FAERS Safety Report 6395341-5 (Version None)
Quarter: 2009Q4

REPORT INFORMATION
  Report Type: 
  Country: None (occurrence: None)
  Receive Date: 20091009
  Receipt Date: 20090925
  Transmission Date: 20100525
  Serious: Yes (Life-Threatening, Hospitalization)
  Sender: FDA-Public Use
  Company Number: B0597077A

PATIENT
  Age: 2 Month
  Sex: Male

DRUGS (2)
  1. TAGAMET [Suspect]
     Route: 048
     Dates: start: 20090812, end: 20090818
  2. ORBENIN CAP [Suspect]
     Indication: DRUG USE FOR UNKNOWN INDICATION
     Route: 065
     Dates: start: 20090816, end: 20090818

REACTIONS (6)
  - ANAEMIA [None]
  - CONVULSION [None]
  - HEPATOCELLULAR INJURY [None]
  - HYPONATRAEMIA [None]
  - RENAL FAILURE ACUTE [None]
  - TRANSAMINASES INCREASED [None]
